FAERS Safety Report 23866114 (Version 1)
Quarter: 2024Q2

REPORT INFORMATION
  Report Type: Report from Study
  Country: US (occurrence: US)
  Receive Date: 20240517
  Receipt Date: 20240517
  Transmission Date: 20240715
  Serious: Yes (Hospitalization, Other)
  Sender: FDA-Public Use
  Company Number: US-ABBVIE-5760943

PATIENT
  Sex: Male

DRUGS (2)
  1. RINVOQ [Suspect]
     Active Substance: UPADACITINIB
     Indication: Colitis ulcerative
     Dosage: 45 MG ONE TABLET BY MOUTH ONE TIME A DAY FOR 8 WEEKS
     Route: 048
     Dates: start: 2023
  2. RINVOQ [Suspect]
     Active Substance: UPADACITINIB
     Indication: Colitis ulcerative
     Dosage: FORM STRENGTH: 15 MG
     Route: 048

REACTIONS (7)
  - Meningitis [Unknown]
  - Colitis ulcerative [Unknown]
  - Hospitalisation [Unknown]
  - Neck pain [Recovered/Resolved]
  - Photophobia [Recovered/Resolved]
  - Headache [Recovered/Resolved]
  - Acne [Unknown]

NARRATIVE: CASE EVENT DATE: 20230101
